FAERS Safety Report 11843273 (Version 1)
Quarter: 2015Q4

REPORT INFORMATION
  Report Type: Spontaneous
  Country: US (occurrence: US)
  Receive Date: 20151216
  Receipt Date: 20151216
  Transmission Date: 20160305
  Serious: Yes (Other)
  Sender: FDA-Public Use
  Company Number: US-ROCHE-1651293

PATIENT
  Sex: Male

DRUGS (2)
  1. ESBRIET [Suspect]
     Active Substance: PIRFENIDONE
     Indication: IDIOPATHIC PULMONARY FIBROSIS
     Dosage: SAME DOSE WAS RECEIVED ON 28/SEP/2015.
     Route: 048
     Dates: start: 20150219
  2. ESBRIET [Suspect]
     Active Substance: PIRFENIDONE
     Dosage: 1 CAPSULE PER DOSE
     Route: 048

REACTIONS (3)
  - Dry skin [Unknown]
  - Vomiting [Unknown]
  - Foaming at mouth [Unknown]
